FAERS Safety Report 5576038-8 (Version None)
Quarter: 2007Q4

REPORT INFORMATION
  Report Type: 
  Country: None (occurrence: None)
  Receive Date: 20071228
  Receipt Date: 20071026
  Transmission Date: 20080405
  Serious: No
  Sender: FDA-Public Use
  Company Number: A0690080A

PATIENT
  Age: 77 Year
  Sex: Female

DRUGS (2)
  1. ADVAIR DISKUS 100/50 [Suspect]
     Indication: ASTHMA
     Dosage: 1PUFF PER DAY
     Route: 055
     Dates: start: 20070101, end: 20071023
  2. OTHER MEDICATIONS [Concomitant]

REACTIONS (5)
  - DYSPHAGIA [None]
  - GLOSSITIS [None]
  - PHARYNGOLARYNGEAL PAIN [None]
  - SKIN DISCOLOURATION [None]
  - SKIN WRINKLING [None]
